FAERS Safety Report 10233868 (Version 2)
Quarter: 2014Q2

REPORT INFORMATION
  Report Type: Report from Study
  Country: US (occurrence: US)
  Receive Date: 20140612
  Receipt Date: 20140612
  Transmission Date: 20141212
  Serious: Yes (Hospitalization)
  Sender: FDA-Public Use
  Company Number: US-BAYER-2014-049111

PATIENT
  Age: 76 Year
  Sex: Male

DRUGS (4)
  1. XOFIGO RADIUM RA223 [Suspect]
     Indication: PROSTATE CANCER
     Dosage: FORMULATION, DOSE REGIMEN, TOTAL DAILY DOSE: 1, ROUTE: INFUSION
  2. XOFIGO RADIUM RA223 [Suspect]
     Indication: PROSTATE CANCER
     Dosage: 74 MCI
     Route: 042
     Dates: start: 20131218
  3. XOFIGO RADIUM RA223 [Suspect]
     Indication: PROSTATE CANCER
     Dosage: 74 MCI
     Route: 042
     Dates: start: 20140115
  4. XOFIGO RADIUM RA223 [Suspect]
     Indication: PROSTATE CANCER
     Dosage: 74 MCI
     Dates: start: 20140216

REACTIONS (6)
  - Blood count abnormal [Recovered/Resolved]
  - Prostatic specific antigen increased [None]
  - White blood cell count decreased [None]
  - Haemoglobin decreased [None]
  - Haematocrit decreased [None]
  - Platelet count decreased [None]
